FAERS Safety Report 9505970 (Version 1)
Quarter: 2013Q1

REPORT INFORMATION
  Report Type: Spontaneous
  Country: US (occurrence: None)
  Receive Date: 20130305
  Receipt Date: 20130305
  Transmission Date: 20140127
  Serious: No
  Sender: FDA-Public Use
  Company Number: 1000039763

PATIENT
  Age: 56 Year
  Sex: Male

DRUGS (11)
  1. DALIRESP (ROFLUMILAST) (500 MICROGRAM, TABLETS) [Suspect]
     Indication: ASTHMA
     Dosage: 500MCG (500MCG, 1 IN 1)
     Dates: start: 201209, end: 201210
  2. DIGOXIN (DIGOXIN) [Suspect]
  3. PRILOSEC (PRILOSEC) (PRILOSEC) [Concomitant]
  4. CLARITIN (CLARITIN) (CLARITIN) [Concomitant]
  5. BENADRYL (BENADRYL) (BENADRYL) [Concomitant]
  6. METOPROLOL TARTRATE (METOPROLOL TARTRATE) (METOPROLOL TARTRATE) [Concomitant]
  7. NAPROXEN SODIUM (NAPROXEN SODIUM) (CAPSULES) (NAPROXEM SODIUM) [Concomitant]
  8. SERTRALINE (SERTRALINE) (SERTRALINE) [Concomitant]
  9. SPIRIVA (TIOTROPIUM BROMIDE) (TIOTROPIUM BROMIDE) [Concomitant]
  10. FUROSEMIDE [Concomitant]
  11. ADVAIR (SERETIDE) (SERETIDE) [Concomitant]

REACTIONS (4)
  - Suicide attempt [None]
  - Intentional overdose [None]
  - Depression [None]
  - Off label use [None]
